FAERS Safety Report 10923672 (Version 2)
Quarter: 2015Q2

REPORT INFORMATION
  Report Type: Spontaneous
  Country: US (occurrence: US)
  Receive Date: 20150318
  Receipt Date: 20150526
  Transmission Date: 20150821
  Serious: No
  Sender: FDA-Public Use
  Company Number: US-JNJFOC-20130811434

PATIENT
  Sex: Male
  Weight: 81.65 kg

DRUGS (1)
  1. HALDOL DECANOATE [Suspect]
     Active Substance: HALOPERIDOL DECANOATE
     Indication: SCHIZOPHRENIA, PARANOID TYPE
     Route: 030
     Dates: start: 1999

REACTIONS (3)
  - Torticollis [Unknown]
  - Muscle strain [Unknown]
  - Muscle contractions involuntary [Unknown]
